FAERS Safety Report 16386421 (Version 1)
Quarter: 2019Q2

REPORT INFORMATION
  Report Type: Report from Study
  Country: None (occurrence: CA)
  Receive Date: 20190603
  Receipt Date: 20190603
  Transmission Date: 20190711
  Serious: Yes (Other)
  Sender: FDA-Public Use
  Company Number: CA-ABBVIE-19K-028-2777637-00

PATIENT
  Age: 57 Year
  Sex: Male
  Weight: 99.5 kg

DRUGS (2)
  1. METHOTREXATE. [Concomitant]
     Active Substance: METHOTREXATE
     Indication: RHEUMATOID ARTHRITIS
     Route: 058
     Dates: start: 201601
  2. HUMIRA [Suspect]
     Active Substance: ADALIMUMAB
     Indication: RHEUMATOID ARTHRITIS
     Route: 058
     Dates: start: 20170207

REACTIONS (6)
  - Injection site pain [Not Recovered/Not Resolved]
  - Ischaemia [Recovered/Resolved]
  - Dyspnoea [Unknown]
  - Coronary arterial stent insertion [Unknown]
  - Coronary artery disease [Recovered/Resolved]
  - Arthralgia [Unknown]

NARRATIVE: CASE EVENT DATE: 201803
